FAERS Safety Report 9675944 (Version 3)
Quarter: 2014Q1

REPORT INFORMATION
  Report Type: Spontaneous
  Country: US (occurrence: US)
  Receive Date: 20131107
  Receipt Date: 20140204
  Transmission Date: 20141002
  Serious: Yes (Hospitalization)
  Sender: FDA-Public Use
  Company Number: US-PFIZER INC-2013318087

PATIENT
  Age: 53 Year
  Sex: Male

DRUGS (8)
  1. LYRICA [Suspect]
     Dosage: 150 MG, 2X/DAY
     Route: 048
  2. PERCOCET [Concomitant]
     Dosage: OXYCODONE HYDROCHLORIDE 7.5 MG/PARACETAMOL 325 MG, UNK
  3. LIPITOR [Concomitant]
     Dosage: UNK
  4. XANAX [Concomitant]
     Dosage: UNK
  5. CELEXA [Concomitant]
     Dosage: UNK
  6. ROBAXIN [Concomitant]
     Dosage: UNK
  7. JALYN [Concomitant]
     Dosage: UNK
  8. LIDODERM [Concomitant]
     Dosage: UNK

REACTIONS (1)
  - Pneumonia [Unknown]
